FAERS Safety Report 12703453 (Version 1)
Quarter: 2016Q3

REPORT INFORMATION
  Report Type: Spontaneous
  Country: US (occurrence: US)
  Receive Date: 20160831
  Receipt Date: 20160831
  Transmission Date: 20161109
  Serious: Yes (Other)
  Sender: FDA-Public Use
  Company Number: US-PFIZER INC-2016297940

PATIENT
  Age: 38 Year
  Sex: Male
  Weight: 94.79 kg

DRUGS (2)
  1. EPINEPHRINE. [Suspect]
     Active Substance: EPINEPHRINE
     Indication: DRUG HYPERSENSITIVITY
     Dosage: 10 TO 15 ML INJECTED OVER ABOUT A 30-SECOND PERIOD-1:1,000 SOLUTION)
     Route: 042
  2. EPINEPHRINE. [Suspect]
     Active Substance: EPINEPHRINE
     Dosage: 0.5 ML (1:1,000 SOLUTION)
     Route: 042

REACTIONS (9)
  - Incorrect route of drug administration [Unknown]
  - Haematemesis [Unknown]
  - Pulmonary oedema [Unknown]
  - Renal failure [Unknown]
  - Abdominal pain [Recovering/Resolving]
  - Acute kidney injury [Unknown]
  - Hypertension [Unknown]
  - Shock [Unknown]
  - Accidental overdose [Unknown]
